FAERS Safety Report 7476471-3 (Version None)
Quarter: 2011Q2

REPORT INFORMATION
  Report Type: 
  Country: None (occurrence: None)
  Receive Date: 20110510
  Receipt Date: 20110510
  Transmission Date: 20111010
  Serious: Yes (Hospitalization)
  Sender: FDA-Public Use
  Company Number: None

PATIENT
  Age: 72 Year
  Sex: Male
  Weight: 90 kg

DRUGS (1)
  1. CLINDAMYCIN [Suspect]
     Indication: INFECTION
     Dosage: 450 MG QID PO
     Route: 048
     Dates: start: 20110208, end: 20110218

REACTIONS (2)
  - DIARRHOEA [None]
  - CLOSTRIDIUM TEST POSITIVE [None]
